FAERS Safety Report 7562179-2 (Version None)
Quarter: 2011Q2

REPORT INFORMATION
  Report Type: 
  Country: None (occurrence: None)
  Receive Date: 20110614
  Receipt Date: 20110601
  Transmission Date: 20111010
  Serious: Yes (Hospitalization, Other)
  Sender: FDA-Public Use
  Company Number: 2011MA006660

PATIENT
  Age: 88 Year
  Sex: Female

DRUGS (3)
  1. METHOTREXATE [Concomitant]
  2. PREDNISONE [Concomitant]
  3. HYDROCORTISONE 2.5% CREAM [Suspect]
     Indication: RHEUMATOID ARTHRITIS
     Dosage: 10 MG;QD

REACTIONS (6)
  - DENTAL CARIES [None]
  - MUSCULOSKELETAL PAIN [None]
  - JOINT EFFUSION [None]
  - ABSCESS [None]
  - SWELLING [None]
  - BACILLUS TEST POSITIVE [None]
